FAERS Safety Report 6511687-1 (Version None)
Quarter: 2009Q4

REPORT INFORMATION
  Report Type: 
  Country: None (occurrence: None)
  Receive Date: 20091222
  Receipt Date: 20090511
  Transmission Date: 20100525
  Serious: No
  Sender: FDA-Public Use
  Company Number: US-ASTRAZENECA-2009UW12036

PATIENT
  Age: 1071 Month
  Sex: Female
  Weight: 54.4 kg

DRUGS (8)
  1. CRESTOR [Suspect]
     Indication: BLOOD CHOLESTEROL INCREASED
     Dosage: 1/2 OF 10 MG TABLET
     Route: 048
     Dates: start: 20090415
  2. ATENOLOL [Concomitant]
  3. LISINOPRIL [Concomitant]
  4. T-MARSEPAN [Concomitant]
  5. ISOSORBIDE [Concomitant]
  6. BUMEX [Concomitant]
  7. POPCLOR [Concomitant]
  8. FOSAMAX [Concomitant]

REACTIONS (3)
  - ABDOMINAL PAIN [None]
  - GROIN PAIN [None]
  - WEIGHT DECREASED [None]
